FAERS Safety Report 26025552 (Version 1)
Quarter: 2025Q4

REPORT INFORMATION
  Report Type: Spontaneous
  Country: US (occurrence: US)
  Receive Date: 20251111
  Receipt Date: 20251111
  Transmission Date: 20260118
  Serious: Yes (Hospitalization)
  Sender: MEITHEAL PHARMACEUTICALS
  Company Number: US-MEITHEAL-2025MPSPO00411

PATIENT

DRUGS (2)
  1. REGADENOSON [Suspect]
     Active Substance: REGADENOSON
     Indication: Product used for unknown indication
     Route: 065
  2. REGADENOSON [Suspect]
     Active Substance: REGADENOSON

REACTIONS (2)
  - Heart rate increased [Recovered/Resolved]
  - Hypotension [Recovered/Resolved]
